FAERS Safety Report 5569035-X (Version None)
Quarter: 2007Q4

REPORT INFORMATION
  Report Type: 
  Country: None (occurrence: None)
  Receive Date: 20071220
  Receipt Date: 20070523
  Transmission Date: 20080405
  Serious: No
  Sender: FDA-Public Use
  Company Number: A0652673A

PATIENT
  Age: 59 Year
  Sex: Male

DRUGS (2)
  1. AVODART [Suspect]
     Indication: BENIGN PROSTATIC HYPERPLASIA
     Dosage: 5MG PER DAY
     Route: 048
     Dates: start: 20070101, end: 20070501
  2. UROXATRAL [Concomitant]

REACTIONS (6)
  - CRYING [None]
  - DEPRESSION [None]
  - FORMICATION [None]
  - INSOMNIA [None]
  - THINKING ABNORMAL [None]
  - WITHDRAWAL SYNDROME [None]
